FAERS Safety Report 7710831-8 (Version None)
Quarter: 2011Q3

REPORT INFORMATION
  Report Type: 
  Country: None (occurrence: None)
  Receive Date: 20110825
  Receipt Date: 20110817
  Transmission Date: 20111222
  Serious: Yes (Hospitalization, Other)
  Sender: FDA-Public Use
  Company Number: US-ALLERGAN-1003108US

PATIENT
  Age: 70 Year
  Sex: Female

DRUGS (16)
  1. CITRACAL-D [Concomitant]
  2. DIOVAN HCT [Concomitant]
  3. ZETIA [Concomitant]
  4. NAPROXEN (ALEVE) [Concomitant]
  5. LUTEIN [Concomitant]
  6. SYNTHROID [Concomitant]
  7. FERROUS SULFATE TAB [Concomitant]
  8. KAPIDEX [Concomitant]
     Indication: GASTROOESOPHAGEAL REFLUX DISEASE
     Dosage: UNK
     Dates: start: 20100219, end: 20100318
  9. BOTULINUM TOXIN TYPE A [Suspect]
     Indication: IMPAIRED GASTRIC EMPTYING
     Dosage: 100 UNITS, SINGLE
     Route: 030
     Dates: start: 20100216, end: 20100216
  10. VITAMIN-MINERAL COMPOUND TAB [Concomitant]
  11. VITAMIN D [Concomitant]
  12. TYLENOL-500 [Concomitant]
  13. SIMTOM SILVER [Concomitant]
  14. ASPIRIN [Concomitant]
  15. FISH OIL [Concomitant]
  16. PROZAC [Concomitant]

REACTIONS (3)
  - DYSPNOEA [None]
  - SPEECH DISORDER [None]
  - DYSPHONIA [None]
